FAERS Safety Report 9621626 (Version 1)
Quarter: 2013Q4

REPORT INFORMATION
  Report Type: Spontaneous
  Country: DE (occurrence: CZ)
  Receive Date: 20131015
  Receipt Date: 20131015
  Transmission Date: 20140711
  Serious: Yes (Other)
  Sender: FDA-Public Use
  Company Number: CZ-FRI-1000049194

PATIENT
  Age: 50 Year
  Sex: Male
  Weight: 110 kg

DRUGS (3)
  1. ROFLUMILAST [Suspect]
     Indication: CHRONIC OBSTRUCTIVE PULMONARY DISEASE
     Dates: start: 201303
  2. ROFLUMILAST [Suspect]
     Dosage: 1 DF
     Dates: start: 201303
  3. ROFLUMILAST [Suspect]
     Dosage: REDUCED DOSE

REACTIONS (3)
  - Dyspepsia [Unknown]
  - Palpitations [Unknown]
  - Headache [Unknown]
